FAERS Safety Report 14489888 (Version 2)
Quarter: 2018Q1

REPORT INFORMATION
  Report Type: Report from Study
  Country: JP (occurrence: JP)
  Receive Date: 20180206
  Receipt Date: 20180213
  Transmission Date: 20180509
  Serious: Yes (Death, Other)
  Sender: FDA-Public Use
  Company Number: JP-ROCHE-2065693

PATIENT
  Age: 58 Year
  Sex: Male

DRUGS (15)
  1. CYCLOPHOSPHAMIDE. [Suspect]
     Active Substance: CYCLOPHOSPHAMIDE
     Route: 042
  2. DEXAMETHASONE. [Suspect]
     Active Substance: DEXAMETHASONE
     Indication: MANTLE CELL LYMPHOMA STAGE IV
     Route: 065
  3. DOXORUBICIN HYDROCHLORIDE. [Suspect]
     Active Substance: DOXORUBICIN HYDROCHLORIDE
     Indication: MANTLE CELL LYMPHOMA STAGE IV
     Route: 042
  4. ETOPOSIDE. [Suspect]
     Active Substance: ETOPOSIDE
     Route: 041
  5. DEXAMETHASONE. [Suspect]
     Active Substance: DEXAMETHASONE
     Route: 065
  6. CYTARABINE. [Suspect]
     Active Substance: CYTARABINE
     Indication: MANTLE CELL LYMPHOMA STAGE IV
     Route: 042
  7. IBRITUMOMAB TIUXETAN [Concomitant]
     Active Substance: IBRITUMOMAB TIUXETAN
     Indication: MANTLE CELL LYMPHOMA STAGE IV
  8. CYCLOPHOSPHAMIDE. [Suspect]
     Active Substance: CYCLOPHOSPHAMIDE
     Route: 042
  9. MELPHALAN. [Suspect]
     Active Substance: MELPHALAN
     Indication: MANTLE CELL LYMPHOMA STAGE IV
     Route: 041
  10. PREDNISOLONE. [Suspect]
     Active Substance: PREDNISOLONE
     Indication: MANTLE CELL LYMPHOMA STAGE IV
     Route: 065
  11. CYCLOPHOSPHAMIDE. [Suspect]
     Active Substance: CYCLOPHOSPHAMIDE
     Indication: MANTLE CELL LYMPHOMA STAGE IV
     Route: 042
  12. ETOPOSIDE. [Suspect]
     Active Substance: ETOPOSIDE
     Indication: MANTLE CELL LYMPHOMA STAGE IV
     Route: 041
  13. BENDAMUSTINE HYDROCHLORIDE. [Suspect]
     Active Substance: BENDAMUSTINE HYDROCHLORIDE
     Indication: MANTLE CELL LYMPHOMA STAGE IV
     Route: 065
  14. RITUXIMAB. [Suspect]
     Active Substance: RITUXIMAB
     Indication: MANTLE CELL LYMPHOMA STAGE IV
     Dosage: 10MG/ML
     Route: 042
  15. ONCOVIN [Suspect]
     Active Substance: VINCRISTINE SULFATE
     Indication: MANTLE CELL LYMPHOMA STAGE IV
     Route: 042

REACTIONS (3)
  - Pneumonia [Fatal]
  - Febrile neutropenia [Unknown]
  - Myelodysplastic syndrome [Unknown]
